FAERS Safety Report 4824886-1 (Version None)
Quarter: 2005Q4

REPORT INFORMATION
  Report Type: 
  Country: None (occurrence: None)
  Receive Date: 20051110
  Receipt Date: 20050114
  Transmission Date: 20060501
  Serious: Yes (Disabling)
  Sender: FDA-Public Use
  Company Number: FR-GLAXOSMITHKLINE-B0365014A

PATIENT
  Age: 36 Year
  Sex: Male

DRUGS (3)
  1. DEROXAT [Suspect]
     Dosage: 30MG PER DAY
     Route: 048
     Dates: start: 20040601
  2. ALCOHOL [Suspect]
     Route: 048
  3. XANAX [Suspect]
     Indication: ANXIETY
     Dosage: 500MCG PER DAY
     Route: 048
     Dates: start: 19980615

REACTIONS (13)
  - ABNORMAL BEHAVIOUR [None]
  - AGGRESSION [None]
  - AGITATION [None]
  - ALCOHOL USE [None]
  - AMNESIA [None]
  - BALANCE DISORDER [None]
  - DRUG INTERACTION [None]
  - DYSARTHRIA [None]
  - FATIGUE [None]
  - HOT FLUSH [None]
  - HYPERHIDROSIS [None]
  - PERSONALITY DISORDER [None]
  - SEXUAL DYSFUNCTION [None]
